FAERS Safety Report 14750142 (Version 3)
Quarter: 2019Q1

REPORT INFORMATION
  Report Type: Report from Study
  Country: ES (occurrence: ES)
  Receive Date: 20180412
  Receipt Date: 20190206
  Transmission Date: 20190417
  Serious: Yes (Other)
  Sender: FDA-Public Use
  Company Number: ES-ACCORD-065438

PATIENT
  Age: 27 Year
  Sex: Female

DRUGS (6)
  1. FOSCARNET [Suspect]
     Active Substance: FOSCARNET
     Indication: INFECTION
  2. VALGANCICLOVIR/VALGANCICLOVIR HYDROCHLORIDE [Suspect]
     Active Substance: VALGANCICLOVIR
     Indication: INFECTION
     Dosage: LATER ALSO RECEIVED AT 1,800 MG/D FOR 55 DAYS
  3. TACROLIMUS. [Suspect]
     Active Substance: TACROLIMUS
     Indication: IMMUNOSUPPRESSION
  4. GANCICLOVIR. [Suspect]
     Active Substance: GANCICLOVIR
     Indication: INFECTION
     Dosage: 7.5 MG/KG TWICE DAILY FOR 9 DAYS
  5. BASILIXIMAB [Concomitant]
     Active Substance: BASILIXIMAB
  6. MYCOPHENOLIC ACID. [Suspect]
     Active Substance: MYCOPHENOLIC ACID
     Indication: IMMUNOSUPPRESSION

REACTIONS (8)
  - Hypomagnesaemia [Unknown]
  - Drug ineffective [Unknown]
  - Neutropenia [Unknown]
  - Drug resistance [Unknown]
  - Acute kidney injury [Recovered/Resolved]
  - Haematotoxicity [Unknown]
  - Hypophosphataemia [Unknown]
  - Cytomegalovirus infection [Recovered/Resolved]
